FAERS Safety Report 4915904-0 (Version None)
Quarter: 2006Q1

REPORT INFORMATION
  Report Type: 
  Country: None (occurrence: None)
  Receive Date: 20060217
  Receipt Date: 20060213
  Transmission Date: 20060701
  Serious: Yes (Other)
  Sender: FDA-Public Use
  Company Number: US-AVENTIS-200611496US

PATIENT
  Sex: Female

DRUGS (3)
  1. LANTUS [Suspect]
     Indication: DIABETES MELLITUS NON-INSULIN-DEPENDENT
     Dosage: DOSE: 10-20 UNITS TO 76 UNITS THEN 80 UNITS
     Dates: start: 20040101
  2. PRANDIN [Concomitant]
     Dosage: DOSE: UNK DOSE WITH MEALS
  3. TOPROL-XL [Concomitant]
     Indication: HYPERTENSION

REACTIONS (7)
  - CONSTIPATION [None]
  - DIARRHOEA [None]
  - ENDOMETRIAL CANCER [None]
  - HYPERTENSION [None]
  - INSOMNIA [None]
  - NAUSEA [None]
  - PAIN [None]
